FAERS Safety Report 7220363 (Version 8)
Quarter: 2014Q1

REPORT INFORMATION
  Report Type: Spontaneous
  Country: US (occurrence: US)
  Receive Date: 20091216
  Receipt Date: 20140114
  Transmission Date: 20141002
  Serious: Yes (Hospitalization)
  Sender: FDA-Public Use
  Company Number: US-BAYER-200942249NA

PATIENT
  Age: 33 Year
  Sex: Female
  Weight: 80 kg

DRUGS (4)
  1. YAZ [Suspect]
     Dosage: UNK UNK, QD
     Route: 048
     Dates: start: 200905, end: 200907
  2. YASMIN [Suspect]
     Indication: ACNE
     Dosage: UNK UNK, QD
     Route: 048
     Dates: start: 200109, end: 200506
  3. YASMIN [Suspect]
     Indication: ORAL CONTRACEPTION
     Dosage: UNK UNK, QD
     Route: 048
     Dates: start: 200708, end: 200804
  4. OCELLA [Suspect]
     Indication: ORAL CONTRACEPTION
     Route: 048
     Dates: start: 20080710, end: 20081228

REACTIONS (7)
  - Cholecystitis chronic [Unknown]
  - Cholelithiasis [None]
  - Jaundice [Unknown]
  - Pain [None]
  - Chromaturia [None]
  - Abdominal pain upper [None]
  - Nausea [None]
